FAERS Safety Report 7561136-X (Version None)
Quarter: 2011Q2

REPORT INFORMATION
  Report Type: 
  Country: None (occurrence: None)
  Receive Date: 20110620
  Receipt Date: 20110620
  Transmission Date: 20111010
  Serious: Yes (Disabling)
  Sender: FDA-Public Use
  Company Number: None

PATIENT
  Sex: Female
  Weight: 86.2 kg

DRUGS (1)
  1. PACLITAXEL [Suspect]

REACTIONS (1)
  - THROMBOSIS IN DEVICE [None]
